FAERS Safety Report 4713800-5 (Version None)
Quarter: 2005Q3

REPORT INFORMATION
  Report Type: 
  Country: None (occurrence: None)
  Receive Date: 20050712
  Receipt Date: 20050629
  Transmission Date: 20060218
  Serious: Yes (Hospitalization, Disabling, Other)
  Sender: FDA-Public Use
  Company Number: 2005095915

PATIENT
  Sex: Male

DRUGS (6)
  1. CELEBREX [Suspect]
     Indication: ARTHRITIS
     Dosage: 400 MG (200 MG, 1 D), UNKNOWN
     Route: 065
  2. DETROL LA [Suspect]
     Indication: BLADDER DISORDER
     Dosage: 8 MG (4 MG, 1 IN 1 D), UNKNOWN
     Route: 065
  3. FLOMAX ^CSL^ (TAMSULOSIN HYDROCHLORIDE) [Concomitant]
  4. PRAVACHOL [Concomitant]
  5. TOPROL-XL [Concomitant]
  6. PRINZIDE [Concomitant]

REACTIONS (14)
  - CONDITION AGGRAVATED [None]
  - DEAFNESS [None]
  - EYE OPERATION [None]
  - HIATUS HERNIA [None]
  - IMPAIRED WORK ABILITY [None]
  - MENTAL DISORDER [None]
  - MYOCARDIAL INFARCTION [None]
  - NEPHROLITHIASIS [None]
  - PROSTATE INFECTION [None]
  - SURGERY [None]
  - TOOTH ABSCESS [None]
  - TOOTH EXTRACTION [None]
  - TRANSIENT ISCHAEMIC ATTACK [None]
  - URINARY TRACT INFECTION [None]
